FAERS Safety Report 17656176 (Version 2)
Quarter: 2020Q4

REPORT INFORMATION
  Report Type: Spontaneous
  Country: US (occurrence: US)
  Receive Date: 20200410
  Receipt Date: 20201229
  Transmission Date: 20210113
  Serious: No
  Sender: FDA-Public Use
  Company Number: US-RECORDATI RARE DISEASES-2082632

PATIENT
  Age: 17 Year
  Sex: Female

DRUGS (3)
  1. CYSTADANE [Suspect]
     Active Substance: BETAINE
     Indication: PRODUCT USED FOR UNKNOWN INDICATION
  2. CYSTADANE [Suspect]
     Active Substance: BETAINE
  3. CYSTADANE [Suspect]
     Active Substance: BETAINE

REACTIONS (5)
  - Product odour abnormal [Unknown]
  - Breath odour [Unknown]
  - Product quality issue [Unknown]
  - Urine odour abnormal [Unknown]
  - Poor quality product administered [Unknown]
